FAERS Safety Report 5274730-6 (Version None)
Quarter: 2007Q1

REPORT INFORMATION
  Report Type: 
  Country: None (occurrence: None)
  Receive Date: 20070320
  Receipt Date: 20070312
  Transmission Date: 20070707
  Serious: Yes (Other)
  Sender: FDA-Public Use
  Company Number: 2007311093

PATIENT
  Age: 49 Year
  Sex: Female
  Weight: 145.151 kg

DRUGS (3)
  1. VISINE EYE DROPS [Suspect]
     Indication: OCULAR HYPERAEMIA
     Dosage: 2 DROPS ONCE IN EACH EYE, OPHTHALMIC
     Route: 047
     Dates: start: 20070311, end: 20070311
  2. ATENOLOL [Concomitant]
  3. HYDROCHLOROTHIAZIDE [Concomitant]

REACTIONS (5)
  - DRUG HYPERSENSITIVITY [None]
  - EYE IRRITATION [None]
  - EYE SWELLING [None]
  - OCULAR HYPERAEMIA [None]
  - VISION BLURRED [None]
